FAERS Safety Report 6275204-6 (Version None)
Quarter: 2009Q3

REPORT INFORMATION
  Report Type: 
  Country: None (occurrence: None)
  Receive Date: 20090721
  Receipt Date: 20090715
  Transmission Date: 20100115
  Serious: Yes (Hospitalization, Other)
  Sender: FDA-Public Use
  Company Number: BE-BAYER-200921437GPV

PATIENT
  Age: 65 Year
  Sex: Male
  Weight: 56 kg

DRUGS (8)
  1. SORAFENIB [Suspect]
     Indication: NON-SMALL CELL LUNG CANCER
     Dosage: TOTAL DAILY DOSE: 800 MG
     Route: 048
     Dates: start: 20081121, end: 20090528
  2. CISPLATIN [Suspect]
     Indication: NON-SMALL CELL LUNG CANCER
     Route: 065
  3. GEMCITABINE [Suspect]
     Indication: NON-SMALL CELL LUNG CANCER
     Route: 065
  4. OMEPRAZOLE [Concomitant]
     Indication: GASTROOESOPHAGEAL REFLUX DISEASE
     Route: 048
     Dates: start: 20081202
  5. MEDROL [Concomitant]
     Indication: SUPPORTIVE CARE
     Route: 048
     Dates: start: 20090512
  6. MS DIRECT [Concomitant]
     Indication: BACK PAIN
     Route: 048
     Dates: start: 20090512
  7. DURAGESIC-100 [Concomitant]
     Indication: BACK PAIN
     Dosage: 100 ?G/H
     Route: 062
     Dates: start: 20081119
  8. SYMBICORT [Concomitant]
     Indication: CHRONIC OBSTRUCTIVE PULMONARY DISEASE
     Route: 055
     Dates: start: 20010101

REACTIONS (3)
  - ANAEMIA [None]
  - LUNG ABSCESS [None]
  - PANCYTOPENIA [None]
